FAERS Safety Report 8449620-8 (Version None)
Quarter: 2012Q2

REPORT INFORMATION
  Report Type: 
  Country: None (occurrence: None)
  Receive Date: 20120620
  Receipt Date: 20120608
  Transmission Date: 20120825
  Serious: No
  Sender: FDA-Public Use
  Company Number: US-BIOGENIDEC-2012BI020697

PATIENT
  Age: 49 Year
  Sex: Female

DRUGS (3)
  1. AVONEX [Suspect]
     Route: 030
     Dates: start: 20091122, end: 20120601
  2. AVONEX [Suspect]
     Indication: MULTIPLE SCLEROSIS
     Route: 030
     Dates: start: 19961101, end: 20000301
  3. AVONEX [Suspect]
     Route: 030
     Dates: start: 20120605

REACTIONS (14)
  - INJECTION SITE HAEMATOMA [None]
  - PAIN IN EXTREMITY [None]
  - INJECTION SITE MASS [None]
  - OEDEMA PERIPHERAL [None]
  - ARTHRALGIA [None]
  - FEELING HOT [None]
  - JOINT SWELLING [None]
  - INJECTION SITE HAEMORRHAGE [None]
  - HEADACHE [None]
  - PYREXIA [None]
  - INJECTION SITE PAIN [None]
  - NAUSEA [None]
  - MUSCULAR WEAKNESS [None]
  - DIZZINESS [None]
